FAERS Safety Report 15300877 (Version 2)
Quarter: 2022Q2

REPORT INFORMATION
  Report Type: Spontaneous
  Country: PT (occurrence: PT)
  Receive Date: 20180821
  Receipt Date: 20220509
  Transmission Date: 20220720
  Serious: Yes (Hospitalization, Other)
  Sender: FDA-Public Use
  Company Number: PHHY2018PT068263

PATIENT
  Age: 17 Year
  Sex: Male

DRUGS (10)
  1. AZITHROMYCIN [Suspect]
     Active Substance: AZITHROMYCIN
     Indication: Headache
     Dosage: UNK
     Route: 065
  2. AZITHROMYCIN [Suspect]
     Active Substance: AZITHROMYCIN
     Indication: Cough
  3. CLARITHROMYCIN [Suspect]
     Active Substance: CLARITHROMYCIN
     Indication: Headache
     Dosage: UNK
     Route: 065
  4. CLARITHROMYCIN [Suspect]
     Active Substance: CLARITHROMYCIN
     Indication: Cough
  5. NIMESULIDE [Suspect]
     Active Substance: NIMESULIDE
     Indication: Headache
     Dosage: UNK
     Route: 065
  6. NIMESULIDE [Suspect]
     Active Substance: NIMESULIDE
     Indication: Cough
  7. BILASTINE [Suspect]
     Active Substance: BILASTINE
     Indication: Headache
     Dosage: UNK
     Route: 065
  8. BILASTINE [Suspect]
     Active Substance: BILASTINE
     Indication: Cough
  9. BILASTINE [Suspect]
     Active Substance: BILASTINE
     Indication: Antiallergic therapy
  10. BRIVUDINE [Suspect]
     Active Substance: BRIVUDINE
     Indication: Lip ulceration
     Dosage: UNK
     Route: 065

REACTIONS (14)
  - Stevens-Johnson syndrome [Recovered/Resolved]
  - Coagulopathy [Recovered/Resolved]
  - Lip oedema [Recovered/Resolved]
  - Enanthema [Recovered/Resolved]
  - Lung infiltration [Recovered/Resolved]
  - Eye discharge [Recovered/Resolved]
  - Rash maculovesicular [Recovered/Resolved]
  - Lip erythema [Recovered/Resolved]
  - Pyrexia [Recovered/Resolved]
  - Genital ulceration [Recovered/Resolved]
  - Oral mucosa erosion [Recovered/Resolved]
  - Conjunctival hyperaemia [Recovered/Resolved]
  - Rash papular [Recovered/Resolved]
  - Nasal mucosal disorder [Recovered/Resolved]
